FAERS Safety Report 6999920-3 (Version None)
Quarter: 2010Q3

REPORT INFORMATION
  Report Type: 
  Country: None (occurrence: None)
  Receive Date: 20100920
  Receipt Date: 20100503
  Transmission Date: 20110219
  Serious: Yes (Other)
  Sender: FDA-Public Use
  Company Number: US-ASTRAZENECA-2010SE10286

PATIENT

DRUGS (2)
  1. SEROQUEL [Suspect]
     Route: 048
  2. BENZODIAZEPINE [Suspect]
     Route: 065

REACTIONS (1)
  - CONVULSION [None]
